FAERS Safety Report 24460313 (Version 1)
Quarter: 2024Q4

REPORT INFORMATION
  Report Type: Report from Study
  Country: US (occurrence: US)
  Receive Date: 20241018
  Receipt Date: 20241018
  Transmission Date: 20250115
  Serious: No
  Sender: ROCHE
  Company Number: US-ROCHE-3546220

PATIENT
  Age: 76 Year
  Sex: Female
  Weight: 73.5 kg

DRUGS (9)
  1. RITUXAN [Suspect]
     Active Substance: RITUXIMAB
     Indication: Rheumatoid arthritis
     Route: 041
     Dates: start: 20150622
  2. RITUXAN [Suspect]
     Active Substance: RITUXIMAB
     Indication: Neoplasm
  3. ASPIRIN [Concomitant]
     Active Substance: ASPIRIN
     Route: 048
  4. CHOLECALCIFEROL [Concomitant]
     Active Substance: CHOLECALCIFEROL
  5. CLOPIDOGREL [Concomitant]
     Active Substance: CLOPIDOGREL BISULFATE
  6. COQ10 UBIQUINOL [Concomitant]
  7. DILTIAZEM [Concomitant]
     Active Substance: DILTIAZEM
  8. EPINEPHRINE [Concomitant]
     Active Substance: EPINEPHRINE
  9. METFORMIN [Concomitant]
     Active Substance: METFORMIN HYDROCHLORIDE

REACTIONS (7)
  - Hepatic enzyme increased [Unknown]
  - Diarrhoea [Unknown]
  - Tremor [Unknown]
  - Seborrhoeic keratosis [Unknown]
  - C-reactive protein abnormal [Unknown]
  - Metabolic function test abnormal [Unknown]
  - Off label use [Unknown]

NARRATIVE: CASE EVENT DATE: 20210322
